FAERS Safety Report 14166152 (Version 2)
Quarter: 2017Q4

REPORT INFORMATION
  Report Type: Spontaneous
  Country: RU (occurrence: RU)
  Receive Date: 20171107
  Receipt Date: 20171205
  Transmission Date: 20180321
  Serious: Yes (Death)
  Sender: FDA-Public Use
  Company Number: RU-ALLERGAN-1762925US

PATIENT
  Age: 80 Year
  Sex: Male
  Weight: 65 kg

DRUGS (1)
  1. MEMANTINE HCL - BP [Suspect]
     Active Substance: MEMANTINE
     Indication: DEMENTIA
     Dosage: 20 MG, UNK
     Route: 065
     Dates: start: 201707, end: 20171001

REACTIONS (3)
  - Cerebral atrophy [Fatal]
  - Haemorrhagic stroke [Fatal]
  - Brain oedema [Fatal]

NARRATIVE: CASE EVENT DATE: 20171001
